FAERS Safety Report 19031772 (Version 1)
Quarter: 2021Q1

REPORT INFORMATION
  Report Type: Spontaneous
  Country: RU (occurrence: RU)
  Receive Date: 20210319
  Receipt Date: 20210319
  Transmission Date: 20210420
  Serious: Yes (Other)
  Sender: FDA-Public Use
  Company Number: RU-PIERREL PHARMA S.P.A.-2021PIR00004

PATIENT
  Age: 42 Year
  Sex: Female

DRUGS (1)
  1. ORABLOC [Suspect]
     Active Substance: ARTICAINE HYDROCHLORIDE\EPINEPHRINE BITARTRATE
     Indication: ANAESTHESIA

REACTIONS (7)
  - Malaise [Unknown]
  - Arrhythmia [Unknown]
  - Bronchospasm [Unknown]
  - Blood pressure decreased [Unknown]
  - Asthenia [Unknown]
  - Facial paralysis [Unknown]
  - Laryngospasm [Unknown]
